FAERS Safety Report 14394467 (Version 25)
Quarter: 2023Q2

REPORT INFORMATION
  Report Type: Report from Study
  Country: DE (occurrence: DE)
  Receive Date: 20180116
  Receipt Date: 20230601
  Transmission Date: 20230722
  Serious: Yes (Hospitalization, Other)
  Sender: FDA-Public Use
  Company Number: None

PATIENT
  Age: 48 Year
  Sex: Male

DRUGS (10)
  1. SIMPONI [Suspect]
     Active Substance: GOLIMUMAB
     Indication: Axial spondyloarthritis
     Route: 058
     Dates: start: 20171220
  2. SIMPONI [Suspect]
     Active Substance: GOLIMUMAB
     Indication: Spondyloarthropathy
     Route: 058
  3. HUMIRA [Suspect]
     Active Substance: ADALIMUMAB
     Indication: Spondyloarthropathy
     Route: 058
     Dates: start: 20170905, end: 20171213
  4. HUMIRA [Suspect]
     Active Substance: ADALIMUMAB
     Indication: Rheumatoid arthritis
     Route: 058
     Dates: start: 20171220
  5. CELECOXIB [Concomitant]
     Active Substance: CELECOXIB
     Indication: Product used for unknown indication
     Dosage: 2800 MG/WEEKNSAR (NON-STEROIDAL ANTI-RHEUMATIC)
     Route: 065
     Dates: start: 20171124, end: 20180101
  6. CELECOXIB [Concomitant]
     Active Substance: CELECOXIB
     Dosage: 2800 MG/ A WEEK
     Route: 065
     Dates: start: 20180716, end: 20181115
  7. CELECOXIB [Concomitant]
     Active Substance: CELECOXIB
     Dosage: 1400 MG/WEEK
     Route: 065
     Dates: start: 20190122, end: 20211225
  8. CELECOXIB [Concomitant]
     Active Substance: CELECOXIB
     Dosage: 7 DAYS PER WEEK
     Route: 065
     Dates: start: 20220509
  9. ACEMETACIN [Concomitant]
     Active Substance: ACEMETACIN
     Indication: Product used for unknown indication
     Route: 065
     Dates: start: 20170828
  10. ETORICOXIB [Concomitant]
     Active Substance: ETORICOXIB
     Indication: Product used for unknown indication
     Dosage: 840 MG PER DAY=840/7=120 MG ONCE
     Route: 065
     Dates: start: 20181207, end: 20190122

REACTIONS (27)
  - Oral herpes [Unknown]
  - Gastrointestinal infection [Not Recovered/Not Resolved]
  - Influenza like illness [Unknown]
  - Sarcoidosis [Unknown]
  - Iridocyclitis [Unknown]
  - Restless legs syndrome [Recovered/Resolved]
  - Chronic idiopathic pain syndrome [Unknown]
  - Colorectal adenoma [Recovered/Resolved]
  - Chronic gastritis [Not Recovered/Not Resolved]
  - Vertigo [Unknown]
  - Chronic idiopathic pain syndrome [Recovered/Resolved]
  - Intervertebral disc protrusion [Not Recovered/Not Resolved]
  - Lymphadenopathy mediastinal [Unknown]
  - Depression [Recovered/Resolved]
  - Axial spondyloarthritis [Unknown]
  - Nasopharyngitis [Unknown]
  - Bronchial hyperreactivity [Unknown]
  - Chronic obstructive pulmonary disease [Unknown]
  - Emphysema [Unknown]
  - Abdominal discomfort [Unknown]
  - Diarrhoea [Unknown]
  - Nausea [Unknown]
  - Hyperhidrosis [Unknown]
  - Hypertension [Unknown]
  - Fall [Unknown]
  - Anaemia [Unknown]
  - Asthma [Unknown]

NARRATIVE: CASE EVENT DATE: 20171225
